FAERS Safety Report 10055729 (Version 3)
Quarter: 2014Q4

REPORT INFORMATION
  Report Type: Spontaneous
  Country: GB (occurrence: GB)
  Receive Date: 20140403
  Receipt Date: 20141015
  Transmission Date: 20150528
  Serious: Yes (Disabling)
  Sender: FDA-Public Use
  Company Number: GB-ACCORD-022746

PATIENT
  Age: 44 Year
  Sex: Female
  Weight: 99.79 kg

DRUGS (6)
  1. AMITRIPTYLINE/AMITRIPTYLINE HYDROCHLORIDE/AMITRIPTYLINE PAMOATE/AMITRIPTYLINOXIDE [Concomitant]
     Dates: start: 20140304
  2. NAPROXEN. [Concomitant]
     Active Substance: NAPROXEN
     Dates: start: 20131114
  3. ACETAMINOPHEN / CODEINE [Concomitant]
     Dates: start: 20140217, end: 20140301
  4. TIMOLOL [Suspect]
     Active Substance: TIMOLOL
     Indication: PRODUCT USED FOR UNKNOWN INDICATION
     Route: 048
     Dates: start: 20140306, end: 20140311
  5. TRAMADOL/TRAMADOL HYDROCHLORIDE [Suspect]
     Active Substance: TRAMADOL HYDROCHLORIDE
     Indication: PRODUCT USED FOR UNKNOWN INDICATION
     Dates: start: 20140306
  6. CERAZETTE [Concomitant]
     Active Substance: DESOGESTREL
     Dates: start: 20140304

REACTIONS (5)
  - Burning sensation [Recovering/Resolving]
  - Blood pressure systolic increased [Recovering/Resolving]
  - Dizziness [Recovering/Resolving]
  - Vertigo [Recovering/Resolving]
  - Vomiting [Recovering/Resolving]

NARRATIVE: CASE EVENT DATE: 20140311
